FAERS Safety Report 9843831 (Version 1)
Quarter: 2013Q4

REPORT INFORMATION
  Report Type: Spontaneous
  Country: US (occurrence: None)
  Receive Date: 20131223
  Receipt Date: 20131223
  Transmission Date: 20140711
  Serious: Yes (Other)
  Sender: FDA-Public Use
  Company Number: 1000050572

PATIENT
  Age: 70 Year
  Sex: Female

DRUGS (5)
  1. LINZESS [Suspect]
     Indication: IRRITABLE BOWEL SYNDROME
     Route: 048
     Dates: start: 20131018, end: 20131021
  2. DETROL (TOLTERODINE L-TARTRATE) [Concomitant]
  3. ALLOPURINOL [Concomitant]
  4. SYNTHROID (LEVOTHYROXINE SODIUM) [Concomitant]
  5. TRIAMTERENE/HYDROCHLOROTHIAZIDE [Concomitant]

REACTIONS (2)
  - Diarrhoea [None]
  - Drug ineffective [None]
